FAERS Safety Report 6520785-8 (Version None)
Quarter: 2009Q4

REPORT INFORMATION
  Report Type: 
  Country: None (occurrence: None)
  Receive Date: 20091229
  Receipt Date: 20091218
  Transmission Date: 20100525
  Serious: Yes (Hospitalization)
  Sender: FDA-Public Use
  Company Number: US-ELI_LILLY_AND_COMPANY-US200912005695

PATIENT
  Sex: Female

DRUGS (13)
  1. FORTEO [Suspect]
     Indication: OSTEOPOROSIS
     Dosage: 20 UG, DAILY (1/D)
     Dates: start: 20091106
  2. CRESTOR [Concomitant]
     Dosage: 20 MG, UNK
  3. ZETIA [Concomitant]
     Dosage: 10 MG, DAILY (1/D)
  4. AMIODARONE [Concomitant]
     Dosage: 100 MG, UNK
  5. OMEPRAZOLE [Concomitant]
     Dosage: 40 MG, EACH MORNING
  6. TEKTURNA                           /01763601/ [Concomitant]
     Dosage: 150 MG, DAILY (1/D)
  7. BENICAR [Concomitant]
     Dosage: 40 MG, DAILY (1/D)
  8. ISOSORBIDE [Concomitant]
     Dosage: 60 MG, UNK
  9. PLAVIX [Concomitant]
     Dosage: 75 MG, DAILY (1/D)
  10. ASPIRIN [Concomitant]
     Dosage: 81 MG, DAILY (1/D)
  11. COMBIVENT [Concomitant]
     Dosage: UNK, AS NEEDED
  12. ADVAIR DISKUS 100/50 [Concomitant]
     Indication: DYSPNOEA
     Dosage: UNK, 2/D
  13. EYE DROPS [Concomitant]

REACTIONS (3)
  - BACK PAIN [None]
  - BLOOD PRESSURE INCREASED [None]
  - CHEST PAIN [None]
